FAERS Safety Report 6845522-9 (Version None)
Quarter: 2010Q3

REPORT INFORMATION
  Report Type: 
  Country: None (occurrence: None)
  Receive Date: 20100713
  Receipt Date: 20100707
  Transmission Date: 20110219
  Serious: Yes (Death, Hospitalization)
  Sender: FDA-Public Use
  Company Number: 2010US002656

PATIENT
  Age: 64 Year
  Sex: Male
  Weight: 94 kg

DRUGS (1)
  1. PROGRAF [Suspect]
     Indication: RENAL TRANSPLANT
     Dates: start: 20060327

REACTIONS (1)
  - ACUTE RESPIRATORY FAILURE [None]
